FAERS Safety Report 23292625 (Version 1)
Quarter: 2023Q4

REPORT INFORMATION
  Report Type: Spontaneous
  Country: US (occurrence: US)
  Receive Date: 20231213
  Receipt Date: 20231213
  Transmission Date: 20240110
  Serious: No
  Sender: FDA-Public Use
  Company Number: US-SA-SAC20231208001012

PATIENT
  Sex: Female

DRUGS (1)
  1. DUPIXENT [Suspect]
     Active Substance: DUPILUMAB
     Indication: General physical health deterioration
     Dosage: 300 MG, QOW
     Route: 058

REACTIONS (3)
  - Injection site reaction [Unknown]
  - Sleep disorder due to a general medical condition [Unknown]
  - Product use in unapproved indication [Unknown]
